FAERS Safety Report 6511645-7 (Version None)
Quarter: 2009Q4

REPORT INFORMATION
  Report Type: 
  Country: None (occurrence: None)
  Receive Date: 20091222
  Receipt Date: 20090505
  Transmission Date: 20100525
  Serious: No
  Sender: FDA-Public Use
  Company Number: US-ASTRAZENECA-2009UW11375

PATIENT
  Sex: Female
  Weight: 72.6 kg

DRUGS (10)
  1. CRESTOR [Suspect]
     Route: 048
  2. AVAPRO [Concomitant]
  3. MULTI-VITAMIN [Concomitant]
  4. ESTRADIOL [Concomitant]
  5. PRILOSEC [Concomitant]
  6. MELOXICAM [Concomitant]
  7. MOTRIN [Concomitant]
  8. TYLENOL (CAPLET) [Concomitant]
  9. CALCIUM [Concomitant]
  10. VITAMIN D [Concomitant]

REACTIONS (3)
  - ARTHRALGIA [None]
  - MYALGIA [None]
  - NEURALGIA [None]
